FAERS Safety Report 6731710-9 (Version None)
Quarter: 2010Q2

REPORT INFORMATION
  Report Type: 
  Country: None (occurrence: None)
  Receive Date: 20100518
  Receipt Date: 20100518
  Transmission Date: 20101027
  Serious: Yes (Other)
  Sender: FDA-Public Use
  Company Number: None

PATIENT
  Age: 43 Year
  Sex: Male

DRUGS (2)
  1. LOVENOX [Suspect]
     Indication: ATRIAL FIBRILLATION
     Dosage: 70 MG Q12H SQ
     Route: 058
     Dates: start: 20100423, end: 20100423
  2. LOVENOX [Suspect]
     Dosage: 30 MG Q24H SQ
     Route: 058
     Dates: start: 20100427, end: 20100513

REACTIONS (3)
  - CATHETER SITE DISCHARGE [None]
  - CATHETER SITE HAEMORRHAGE [None]
  - RENAL FAILURE ACUTE [None]
